FAERS Safety Report 5500609-8 (Version None)
Quarter: 2007Q4

REPORT INFORMATION
  Report Type: 
  Country: None (occurrence: None)
  Receive Date: 20071018
  Receipt Date: 20061114
  Transmission Date: 20080405
  Serious: Yes (Other)
  Sender: FDA-Public Use
  Company Number: 2006142260

PATIENT
  Sex: Male

DRUGS (2)
  1. NEURONTIN [Suspect]
  2. LORAZEPAM [Concomitant]

REACTIONS (3)
  - ALTERED STATE OF CONSCIOUSNESS [None]
  - AMNESIA [None]
  - SOMNOLENCE [None]
